FAERS Safety Report 12858105 (Version 1)
Quarter: 2016Q4

REPORT INFORMATION
  Report Type: Spontaneous
  Country: US (occurrence: US)
  Receive Date: 20161018
  Receipt Date: 20161018
  Transmission Date: 20170207
  Serious: No
  Sender: FDA-Public Use
  Company Number: US-PERRIGO-16US015445

PATIENT
  Sex: Female
  Weight: 102.49 kg

DRUGS (8)
  1. NICOTINE POLACRILEX [Suspect]
     Active Substance: NICOTINE
     Indication: SMOKING CESSATION THERAPY
     Dosage: 4 MG, 3 TO 8 TIMES DAILY
     Route: 002
     Dates: start: 2012
  2. CLARITIN [Concomitant]
     Active Substance: LORATADINE
     Indication: HYPERSENSITIVITY
     Dosage: UNK
     Route: 065
  3. ANTIHYPERTENSIVES [Concomitant]
     Active Substance: UNSPECIFIED INGREDIENT
     Indication: HYPERTENSION
     Dosage: UNK
     Route: 065
  4. PSYCHOTROPIC AGENTS [Concomitant]
     Active Substance: UNSPECIFIED INGREDIENT
     Indication: PRODUCT USED FOR UNKNOWN INDICATION
     Dosage: UNK
     Route: 065
  5. DRUGS USED IN DIABETES [Concomitant]
     Active Substance: UNSPECIFIED INGREDIENT
     Indication: DIABETES MELLITUS
     Dosage: UNK
     Route: 065
  6. NICOTINE POLACRILEX [Suspect]
     Active Substance: NICOTINE
     Indication: ANXIETY
  7. NICOTINE POLACRILEX [Suspect]
     Active Substance: NICOTINE
     Indication: HYPERSENSITIVITY
  8. NICOTINE POLACRILEX [Suspect]
     Active Substance: NICOTINE
     Indication: DEPRESSION

REACTIONS (4)
  - Tremor [Not Recovered/Not Resolved]
  - Agitation [Unknown]
  - Off label use [Not Recovered/Not Resolved]
  - Nicotine dependence [Not Recovered/Not Resolved]

NARRATIVE: CASE EVENT DATE: 2012
